FAERS Safety Report 24347976 (Version 1)
Quarter: 2024Q3

REPORT INFORMATION
  Report Type: Report from Study
  Country: CA (occurrence: CA)
  Receive Date: 20240923
  Receipt Date: 20240923
  Transmission Date: 20241016
  Serious: Yes (Death)
  Sender: ROCHE
  Company Number: CA-ROCHE-10000087657

PATIENT
  Sex: Male

DRUGS (1)
  1. VABYSMO [Suspect]
     Active Substance: FARICIMAB-SVOA
     Indication: Neovascular age-related macular degeneration
     Dosage: 6MG/0.05ML
     Route: 050
     Dates: start: 20221123

REACTIONS (1)
  - Death [Fatal]
